FAERS Safety Report 13430568 (Version 3)
Quarter: 2017Q2

REPORT INFORMATION
  Report Type: Spontaneous
  Country: US (occurrence: US)
  Receive Date: 20170412
  Receipt Date: 20170530
  Transmission Date: 20170830
  Serious: No
  Sender: FDA-Public Use
  Company Number: US-PFIZER INC-2017158367

PATIENT
  Age: 75 Year
  Sex: Male
  Weight: 98 kg

DRUGS (5)
  1. PREDNISONE. [Concomitant]
     Active Substance: PREDNISONE
     Indication: CORTISOL DEFICIENCY
     Dosage: 3 MG, 1X/DAY
     Route: 048
     Dates: start: 2007
  2. CLONIDINE. [Concomitant]
     Active Substance: CLONIDINE
     Indication: BLOOD PRESSURE ABNORMAL
     Dosage: 0.1 MG, 2X/DAY
     Route: 048
     Dates: start: 2016
  3. CARVEDILOL. [Concomitant]
     Active Substance: CARVEDILOL
     Indication: CARDIAC DISORDER
     Dosage: 25 MG, 2X/DAY
     Route: 048
     Dates: start: 2006
  4. GENOTROPIN [Suspect]
     Active Substance: SOMATROPIN
     Indication: HORMONE LEVEL ABNORMAL
     Dosage: 0.4 MG, 1X/DAY
     Route: 058
     Dates: start: 2007, end: 201704
  5. GENOTROPIN [Suspect]
     Active Substance: SOMATROPIN
     Indication: PITUITARY TUMOUR BENIGN

REACTIONS (2)
  - Intentional product misuse [Unknown]
  - Fatigue [Unknown]

NARRATIVE: CASE EVENT DATE: 201703
